FAERS Safety Report 5147944-3 (Version None)
Quarter: 2006Q4

REPORT INFORMATION
  Report Type: 
  Country: None (occurrence: None)
  Receive Date: 20061110
  Receipt Date: 20060630
  Transmission Date: 20070319
  Serious: Yes (Hospitalization)
  Sender: FDA-Public Use
  Company Number: US-BAYER-200614412BWH

PATIENT
  Age: 74 Year
  Sex: Male

DRUGS (3)
  1. TRASYLOL [Suspect]
     Indication: CORONARY ARTERY BYPASS
     Route: 042
     Dates: start: 20051221
  2. FACTOR VII [Concomitant]
  3. HEPARIN [Concomitant]

REACTIONS (19)
  - ANAEMIA POSTOPERATIVE [None]
  - ANURIA [None]
  - ATRIAL FIBRILLATION [None]
  - CEREBROVASCULAR ACCIDENT [None]
  - CONTINUOUS HAEMODIAFILTRATION [None]
  - DYSPNOEA EXERTIONAL [None]
  - ELECTROLYTE IMBALANCE [None]
  - HEPARIN-INDUCED THROMBOCYTOPENIA [None]
  - HYPOTENSION [None]
  - LEUKOCYTOSIS [None]
  - MITRAL VALVE INCOMPETENCE [None]
  - REFUSAL OF TREATMENT BY PATIENT [None]
  - RENAL FAILURE ACUTE [None]
  - RENAL ISCHAEMIA [None]
  - RENAL TUBULAR NECROSIS [None]
  - RESPIRATORY FAILURE [None]
  - SINUS TACHYCARDIA [None]
  - URINARY TRACT INFECTION [None]
  - URINARY TRACT INFECTION PSEUDOMONAL [None]
